FAERS Safety Report 21685077 (Version 2)
Quarter: 2022Q4

REPORT INFORMATION
  Report Type: Report from Study
  Country: EG (occurrence: EG)
  Receive Date: 20221206
  Receipt Date: 20221229
  Transmission Date: 20230113
  Serious: Yes (Other)
  Sender: FDA-Public Use
  Company Number: EG-002147023-NVSC2022EG281565

PATIENT
  Age: 28 Year
  Sex: Male

DRUGS (1)
  1. COSENTYX [Suspect]
     Active Substance: SECUKINUMAB
     Indication: Ankylosing spondylitis
     Dosage: 1 DOSAGE FORM, QW (1 PREFILLED PEN PER WEEK FOR A MONTH AS A LOADING DOSE THEN 1 PREFILLED PEN PER M
     Route: 058
     Dates: start: 20221127

REACTIONS (5)
  - Loss of consciousness [Unknown]
  - Seizure [Unknown]
  - Dizziness [Unknown]
  - Lethargy [Unknown]
  - Hypersensitivity [Unknown]

NARRATIVE: CASE EVENT DATE: 20221127
